FAERS Safety Report 17841764 (Version 3)
Quarter: 2021Q1

REPORT INFORMATION
  Report Type: Spontaneous
  Country: DE (occurrence: DE)
  Receive Date: 20200529
  Receipt Date: 20210120
  Transmission Date: 20210419
  Serious: Yes (Other)
  Sender: FDA-Public Use
  Company Number: NVSC2020DE046109

PATIENT
  Sex: Female
  Weight: 75.6 kg

DRUGS (21)
  1. VENORUTON INTENS [Concomitant]
     Indication: PRODUCT USED FOR UNKNOWN INDICATION
     Dosage: UNK
     Route: 065
     Dates: start: 1997
  2. BERLOSIN [Concomitant]
     Active Substance: METAMIZOLE
     Indication: PRODUCT USED FOR UNKNOWN INDICATION
     Dosage: UNK
     Route: 065
  3. CANDESARTAN. [Concomitant]
     Active Substance: CANDESARTAN
     Indication: PRODUCT USED FOR UNKNOWN INDICATION
     Dosage: UNK
     Route: 065
  4. VALSARTAN. [Suspect]
     Active Substance: VALSARTAN
     Indication: PRODUCT USED FOR UNKNOWN INDICATION
     Dosage: 80 MG, QD (80MG/12.5 MG)
     Route: 065
     Dates: start: 20150421
  5. VALSARTAN HEXAL 80 MG FILMTABLETTEN [Suspect]
     Active Substance: VALSARTAN
     Dosage: 80 MG, QD (HALF 80 MG)
     Route: 065
     Dates: start: 20170406, end: 20180704
  6. VALSACOR COMP [Concomitant]
     Active Substance: HYDROCHLOROTHIAZIDE\VALSARTAN
     Indication: PRODUCT USED FOR UNKNOWN INDICATION
     Dosage: UNK
     Route: 065
     Dates: start: 20151128
  7. BACTOFLOX [Concomitant]
     Indication: PRODUCT USED FOR UNKNOWN INDICATION
     Dosage: UNK
     Route: 065
  8. DICLOFENAC [Suspect]
     Active Substance: DICLOFENAC
     Indication: PRODUCT USED FOR UNKNOWN INDICATION
     Dosage: UNK
     Route: 065
  9. VALSARTAN. [Concomitant]
     Active Substance: VALSARTAN
     Indication: PRODUCT USED FOR UNKNOWN INDICATION
     Dosage: 80 MG, HALF A TABLET
     Route: 065
     Dates: start: 20151128
  10. VALSARTAN HEXAL 80 MG FILMTABLETTEN [Suspect]
     Active Substance: VALSARTAN
     Dosage: 80 MG, BID (80 MG/ 12.5 MG)
     Route: 065
     Dates: start: 20140714
  11. VALSARTAN. [Suspect]
     Active Substance: VALSARTAN
     Dosage: 80 MG, BID (80 MG/12.5 MG)
     Route: 065
     Dates: start: 20150421
  12. VALSARTAN HEXAL 80 MG FILMTABLETTEN [Suspect]
     Active Substance: VALSARTAN
     Dosage: 80 MG, QD (80 MG/ 12.5 MG)
     Route: 065
     Dates: start: 20180705, end: 20180715
  13. VALSARTAN HEXAL 80 MG FILMTABLETTEN [Suspect]
     Active Substance: VALSARTAN
     Dosage: 80 MG, QD (HALF 80 MG)
     Route: 065
     Dates: start: 20180705, end: 20180715
  14. CEFUROXIME. [Concomitant]
     Active Substance: CEFUROXIME
     Indication: PRODUCT USED FOR UNKNOWN INDICATION
     Dosage: UNK
     Route: 065
  15. VALSARTAN HEXAL 80 MG FILMTABLETTEN [Suspect]
     Active Substance: VALSARTAN
     Indication: PRODUCT USED FOR UNKNOWN INDICATION
     Dosage: 80 MG (80 MG/ 12.5 MG)
     Route: 065
     Dates: start: 201209
  16. VALSARTAN HEXAL 80 MG FILMTABLETTEN [Suspect]
     Active Substance: VALSARTAN
     Dosage: 80 MG, QD (80 MG/ 12.5 MG)
     Route: 065
     Dates: start: 20140127, end: 20140713
  17. METHOTREXATE. [Concomitant]
     Active Substance: METHOTREXATE
     Indication: PRODUCT USED FOR UNKNOWN INDICATION
     Dosage: UNK
     Route: 065
  18. ACETYLSALICYLIC ACID [Suspect]
     Active Substance: ASPIRIN
     Indication: PRODUCT USED FOR UNKNOWN INDICATION
     Dosage: UNK
     Route: 065
  19. MAGNEESIUM [Concomitant]
     Active Substance: MAGNESIUM
     Indication: PRODUCT USED FOR UNKNOWN INDICATION
     Dosage: UNK
     Route: 065
     Dates: start: 1997
  20. METRONIDAZOLE. [Concomitant]
     Active Substance: METRONIDAZOLE
     Indication: PRODUCT USED FOR UNKNOWN INDICATION
     Dosage: UNK
     Route: 065
  21. OLMESARTAN [Concomitant]
     Active Substance: OLMESARTAN
     Indication: PRODUCT USED FOR UNKNOWN INDICATION
     Dosage: UNK
     Route: 065

REACTIONS (35)
  - Tinnitus [Unknown]
  - Osteoarthritis [Unknown]
  - Drug hypersensitivity [Unknown]
  - Diverticulitis [Unknown]
  - Dizziness [Recovered/Resolved]
  - Poor quality sleep [Recovered/Resolved]
  - Irritable bowel syndrome [Unknown]
  - Somatic symptom disorder [Unknown]
  - Apathy [Unknown]
  - Oedema peripheral [Unknown]
  - Diverticulum intestinal [Unknown]
  - Syncope [Unknown]
  - Anxiety [Recovered/Resolved]
  - Constipation [Unknown]
  - Sleep disorder [Unknown]
  - Merycism [Unknown]
  - Stenosis [Unknown]
  - Pharyngitis [Unknown]
  - Sinus tachycardia [Unknown]
  - Granulomatosis with polyangiitis [Unknown]
  - Blood pressure increased [Recovered/Resolved]
  - Colitis [Unknown]
  - Coronary artery disease [Unknown]
  - Bone pain [Unknown]
  - Synovial cyst [Unknown]
  - Arthralgia [Unknown]
  - Abdominal pain lower [Unknown]
  - Loss of consciousness [Unknown]
  - Gastrointestinal disorder [Recovered/Resolved]
  - Fatigue [Unknown]
  - Ligament injury [Unknown]
  - Angina pectoris [Recovered/Resolved]
  - Emotional distress [Unknown]
  - Pain in extremity [Unknown]
  - Headache [Unknown]

NARRATIVE: CASE EVENT DATE: 200104
